FAERS Safety Report 8198181-X (Version None)
Quarter: 2012Q1

REPORT INFORMATION
  Report Type: 
  Country: None (occurrence: None)
  Receive Date: 20120309
  Receipt Date: 20111207
  Transmission Date: 20120608
  Serious: No
  Sender: FDA-Public Use
  Company Number: US-AMGEN-USASP2011065416

PATIENT
  Age: 95 Year
  Sex: Female

DRUGS (6)
  1. PROLIA [Suspect]
     Indication: OSTEOPOROSIS POSTMENOPAUSAL
     Dosage: UNK UNK, Q6MO
     Dates: start: 20110701
  2. BELLADONNA + DERIVAT. IN COMB. W PSYCHOLEP. [Concomitant]
  3. TRAMADOL HCL [Concomitant]
  4. TEMAZEPAM [Concomitant]
  5. LEVOTHYROXINE SODIUM [Concomitant]
  6. ATENOLOL [Concomitant]
     Dosage: UNK

REACTIONS (5)
  - WEIGHT DECREASED [None]
  - ORAL FUNGAL INFECTION [None]
  - BURN INFECTION [None]
  - ORAL PAIN [None]
  - IMPAIRED HEALING [None]
